FAERS Safety Report 13427253 (Version 1)
Quarter: 2017Q2

REPORT INFORMATION
  Report Type: Report from Study
  Country: ZA (occurrence: ZA)
  Receive Date: 20170411
  Receipt Date: 20170411
  Transmission Date: 20170830
  Serious: Yes (Other)
  Sender: FDA-Public Use
  Company Number: PHHY2017ZA054204

PATIENT
  Age: 82 Year
  Sex: Female

DRUGS (1)
  1. ACLASTA [Suspect]
     Active Substance: ZOLEDRONIC ACID
     Indication: OSTEOPOROSIS
     Dosage: 5 MG/DL (100 ML), Q12MO
     Route: 042
     Dates: start: 201504, end: 201504

REACTIONS (4)
  - Drug ineffective [Unknown]
  - Spinal compression fracture [Unknown]
  - Dysstasia [Unknown]
  - Bone density abnormal [Recovering/Resolving]

NARRATIVE: CASE EVENT DATE: 201508
